FAERS Safety Report 5463458-5 (Version None)
Quarter: 2007Q3

REPORT INFORMATION
  Report Type: 
  Country: None (occurrence: None)
  Receive Date: 20070920
  Receipt Date: 20070911
  Transmission Date: 20080115
  Serious: Yes (Hospitalization, Other)
  Sender: FDA-Public Use
  Company Number: JP-ALLERGAN-0710154US

PATIENT
  Sex: Female

DRUGS (9)
  1. OFLOXACIN [Suspect]
     Indication: EYE DISCHARGE
     Dosage: UNK, QID
     Route: 047
     Dates: start: 20020924, end: 20021113
  2. OFLOXACIN [Suspect]
     Dosage: UNK, Q4HR
     Route: 047
     Dates: start: 20021113, end: 20021125
  3. BROMFENAC SODIUM [Suspect]
     Indication: ULCERATIVE KERATITIS
     Dosage: UNK, QID
     Route: 047
     Dates: start: 20021125, end: 20021129
  4. LEVOFLOXACIN [Concomitant]
     Indication: ULCERATIVE KERATITIS
     Dosage: UNK, Q2HR
     Route: 047
     Dates: start: 20021125
  5. ERYTHROMYCIN [Concomitant]
     Indication: ULCERATIVE KERATITIS
     Dosage: UNK, Q2HR
     Route: 047
     Dates: start: 20021125
  6. ATROPINE [Concomitant]
     Indication: ULCERATIVE KERATITIS
     Dosage: UNK, BID
     Route: 047
     Dates: start: 20021125
  7. TOSUFLOXACIN [Concomitant]
     Indication: ULCERATIVE KERATITIS
     Dosage: 225 MG, QD
     Route: 048
     Dates: start: 20021125
  8. MOFEZOLAC [Concomitant]
     Indication: ULCERATIVE KERATITIS
     Dosage: 225 MG, QD
     Dates: start: 20021125
  9. FOSFOMYCIN [Concomitant]
     Indication: ULCERATIVE KERATITIS
     Dosage: 4 G, QD
     Route: 042
     Dates: start: 20021125

REACTIONS (4)
  - CATARACT [None]
  - CHOROIDAL DETACHMENT [None]
  - CORNEAL PERFORATION [None]
  - ULCERATIVE KERATITIS [None]
